FAERS Safety Report 7328655-2 (Version None)
Quarter: 2011Q1

REPORT INFORMATION
  Report Type: 
  Country: None (occurrence: None)
  Receive Date: 20110303
  Receipt Date: 20110215
  Transmission Date: 20110831
  Serious: Yes (Other)
  Sender: FDA-Public Use
  Company Number: PHHY2010US81233

PATIENT
  Sex: Female

DRUGS (5)
  1. GLEEVEC [Suspect]
     Indication: CHRONIC MYELOID LEUKAEMIA
     Dosage: 400 MG, QD
     Route: 048
     Dates: start: 20080820
  2. ASPIRIN [Concomitant]
     Dosage: 81 MG DAILY
     Route: 048
  3. METOPROLOL [Concomitant]
     Dosage: 30 MG DAILY
     Route: 048
  4. COMPAZINE [Concomitant]
     Dosage: UNK
     Route: 048
  5. IBUPROFEN [Concomitant]
     Dosage: UNK
     Route: 048

REACTIONS (4)
  - URINARY TRACT INFECTION [None]
  - GASTROENTERITIS SALMONELLA [None]
  - DIARRHOEA [None]
  - INFLUENZA LIKE ILLNESS [None]
